FAERS Safety Report 7534676-7 (Version None)
Quarter: 2011Q2

REPORT INFORMATION
  Report Type: 
  Country: None (occurrence: None)
  Receive Date: 20110609
  Receipt Date: 20110409
  Transmission Date: 20111010
  Serious: Yes (Other)
  Sender: FDA-Public Use
  Company Number: PHHY2011JP13555

PATIENT
  Sex: Male
  Weight: 80 kg

DRUGS (6)
  1. NEORAL [Suspect]
     Indication: DERMATITIS ATOPIC
     Dosage: 250 MG, UNK
     Route: 048
     Dates: start: 20090914, end: 20090915
  2. FLOMAX [Concomitant]
     Indication: PYREXIA
     Dosage: 300 MG, UNK
     Route: 048
     Dates: start: 20090917, end: 20090920
  3. OLOPATADINE HCL [Concomitant]
     Indication: DERMATITIS ATOPIC
     Dosage: 10 MG, UNK
     Route: 048
     Dates: start: 20090911
  4. PROPETO [Concomitant]
     Indication: DERMATITIS ATOPIC
     Dosage: 5 MG, UNK
     Route: 061
     Dates: start: 20090911
  5. ANTEBATE [Concomitant]
     Indication: DERMATITIS ATOPIC
     Dosage: 5 MG, UNK
     Route: 061
  6. LOCOID [Concomitant]
     Indication: DERMATITIS ATOPIC
     Dosage: 1 MG, UNK
     Route: 061
     Dates: start: 20090911

REACTIONS (3)
  - WHITE BLOOD CELL COUNT INCREASED [None]
  - PYREXIA [None]
  - STAPHYLOCOCCAL SKIN INFECTION [None]
